FAERS Safety Report 25042043 (Version 1)
Quarter: 2025Q1

REPORT INFORMATION
  Report Type: Spontaneous
  Country: RU (occurrence: RU)
  Receive Date: 20250305
  Receipt Date: 20250305
  Transmission Date: 20250408
  Serious: Yes (Death, Hospitalization, Other)
  Sender: MERCK SHARP & DOHME LLC
  Company Number: RU-009507513-2258995

PATIENT
  Age: 54 Year
  Sex: Female

DRUGS (12)
  1. KEYTRUDA [Suspect]
     Active Substance: PEMBROLIZUMAB
     Indication: Non-small cell lung cancer
     Dosage: 200 MG INTRAVENOUSLY DRIP ONCE EVERY 21 DAYS
     Route: 041
     Dates: start: 20241121, end: 20241121
  2. BISOPROLOL [Concomitant]
     Active Substance: BISOPROLOL
     Route: 048
     Dates: start: 202509, end: 20250131
  3. APIXABAN [Concomitant]
     Active Substance: APIXABAN
     Route: 048
     Dates: start: 20241220, end: 20250131
  4. Elzepam [Concomitant]
     Route: 030
     Dates: start: 20241231, end: 20250131
  5. MORPHINE [Concomitant]
     Active Substance: MORPHINE
     Route: 030
     Dates: start: 20250106, end: 20250131
  6. PEMETREXED [Concomitant]
     Active Substance: PEMETREXED
     Route: 041
     Dates: start: 20241124
  7. CARBOPLATIN [Concomitant]
     Active Substance: CARBOPLATIN
     Route: 041
     Dates: start: 20241121, end: 20241121
  8. CYANOCOBALAMIN [Concomitant]
     Active Substance: CYANOCOBALAMIN
     Route: 030
     Dates: start: 20241121, end: 20241121
  9. FOLIC ACID [Concomitant]
     Active Substance: FOLIC ACID
     Route: 048
     Dates: start: 20241111, end: 20250131
  10. Nutricomp drink plus [Concomitant]
     Route: 048
     Dates: start: 20241210, end: 20250131
  11. RINGERS SOLUTION [Concomitant]
     Active Substance: CALCIUM CHLORIDE\POTASSIUM CHLORIDE\SODIUM CHLORIDE
     Route: 042
     Dates: start: 20241210, end: 20250131
  12. ENOXAPARIN [Concomitant]
     Active Substance: ENOXAPARIN
     Route: 058
     Dates: start: 20241212, end: 20241220

REACTIONS (9)
  - Asthenia [Unknown]
  - Ascites [Unknown]
  - Pulmonary embolism [Fatal]
  - Depressed level of consciousness [Unknown]
  - Pain [Unknown]
  - Cardiac arrest [Fatal]
  - Anaemia [Unknown]
  - Thrombocytopenia [Unknown]
  - Hypoproteinaemia [Unknown]

NARRATIVE: CASE EVENT DATE: 20241126
